FAERS Safety Report 11126806 (Version 4)
Quarter: 2016Q4

REPORT INFORMATION
  Report Type: Report from Study
  Country: BR (occurrence: BR)
  Receive Date: 20150520
  Receipt Date: 20161207
  Transmission Date: 20170206
  Serious: Yes (Other)
  Sender: FDA-Public Use
  Company Number: PHHY2015BR060158

PATIENT
  Sex: Male
  Weight: 66 kg

DRUGS (1)
  1. AFINITOR [Suspect]
     Active Substance: EVEROLIMUS
     Indication: RENAL CANCER
     Dosage: 1 DF, QD
     Route: 065
     Dates: start: 20150425

REACTIONS (16)
  - Skin fissures [Not Recovered/Not Resolved]
  - Aphthous ulcer [Unknown]
  - Oral pain [Unknown]
  - Rash maculo-papular [Not Recovered/Not Resolved]
  - Insomnia [Unknown]
  - Weight decreased [Unknown]
  - Metastasis [Unknown]
  - Furuncle [Recovering/Resolving]
  - Wound secretion [Not Recovered/Not Resolved]
  - Pruritus [Not Recovered/Not Resolved]
  - Rash [Not Recovered/Not Resolved]
  - Decreased appetite [Unknown]
  - Rash erythematous [Recovered/Resolved]
  - Feeding disorder [Recovered/Resolved]
  - Mouth injury [Not Recovered/Not Resolved]
  - Drug ineffective [Unknown]
